FAERS Safety Report 8784785 (Version 1)
Quarter: 2012Q4

REPORT INFORMATION
  Report Type: 
  Country: US (occurrence: US)
  Receive Date: 20120914
  Receipt Date: 20120914
  Transmission Date: 20130627
  Serious: Yes (Hospitalization, Other)
  Sender: FDA-Public Use
  Company Number: US-BRISTOL-MYERS SQUIBB COMPANY-16932998

PATIENT
  Age: 58 Year
  Sex: Female
  Weight: 91 kg

DRUGS (2)
  1. ABILIFY [Suspect]
     Indication: CRYING
     Dosage: 1 df= 2.5mg to 10mg duration: 1-2 weeks
     Dates: start: 201204
  2. ABILIFY [Suspect]
     Indication: DEMENTIA
     Dosage: 1 df= 2.5mg to 10mg duration: 1-2 weeks
     Dates: start: 201204

REACTIONS (4)
  - Cerebrovascular accident [Unknown]
  - Respiratory failure [Unknown]
  - Dysphagia [Unknown]
  - Abnormal behaviour [Unknown]
